FAERS Safety Report 13145251 (Version 1)
Quarter: 2017Q1

REPORT INFORMATION
  Report Type: Report from Study
  Country: US (occurrence: US)
  Receive Date: 20170124
  Receipt Date: 20170124
  Transmission Date: 20170428
  Serious: Yes (Hospitalization)
  Sender: FDA-Public Use
  Company Number: US-ROCHE-1864126

PATIENT
  Age: 59 Year
  Sex: Male
  Weight: 63.56 kg

DRUGS (4)
  1. ESBRIET [Suspect]
     Active Substance: PIRFENIDONE
     Route: 048
     Dates: start: 201611
  2. ESBRIET [Suspect]
     Active Substance: PIRFENIDONE
     Indication: IDIOPATHIC PULMONARY FIBROSIS
     Dosage: 2 CAPSULES 3 TIMES PER DAY. ;ONGOING: YES
     Route: 048
     Dates: start: 201611
  3. OXYGEN 100% [Concomitant]
     Indication: IDIOPATHIC PULMONARY FIBROSIS
     Dosage: 24 HOURS PER DAY ;ONGOING: YES
     Route: 045
  4. ESBRIET [Suspect]
     Active Substance: PIRFENIDONE
     Dosage: 3 - 267MG CAPSULES 3 TIMES PER DAY; ONGOING: YES
     Route: 048

REACTIONS (10)
  - Asthenia [Not Recovered/Not Resolved]
  - Abasia [Recovering/Resolving]
  - Dyspnoea [Recovering/Resolving]
  - Weight decreased [Not Recovered/Not Resolved]
  - Pain [Not Recovered/Not Resolved]
  - Fatigue [Not Recovered/Not Resolved]
  - Malaise [Unknown]
  - Weight decreased [Not Recovered/Not Resolved]
  - Pain in extremity [Not Recovered/Not Resolved]
  - Dyspnoea [Not Recovered/Not Resolved]

NARRATIVE: CASE EVENT DATE: 201611
